FAERS Safety Report 8329584-8 (Version None)
Quarter: 2012Q2

REPORT INFORMATION
  Report Type: 
  Country: None (occurrence: None)
  Receive Date: 20120502
  Receipt Date: 20120412
  Transmission Date: 20120825
  Serious: Yes (Death, Hospitalization, Other)
  Sender: FDA-Public Use
  Company Number: PL-ROCHE-1059489

PATIENT
  Age: 33 Year
  Sex: Female

DRUGS (5)
  1. MABTHERA [Suspect]
     Indication: DIFFUSE LARGE B-CELL LYMPHOMA
     Dates: start: 20090522, end: 20090911
  2. MABTHERA [Suspect]
     Dates: end: 20100308
  3. METHOTREXATE [Concomitant]
  4. DEXAVEN (DEXAMETHASONE SODIUM PHOSPHATE) [Concomitant]
  5. CYTARABINE [Concomitant]

REACTIONS (20)
  - MONOPARESIS [None]
  - FEBRILE NEUTROPENIA [None]
  - C-REACTIVE PROTEIN INCREASED [None]
  - ASTHENIA [None]
  - HYPOKALAEMIA [None]
  - THROMBOCYTOPENIA [None]
  - ALANINE AMINOTRANSFERASE INCREASED [None]
  - VISUAL IMPAIRMENT [None]
  - LEUKOPENIA [None]
  - BLOOD FIBRINOGEN INCREASED [None]
  - PLEOCYTOSIS [None]
  - SEPTIC SHOCK [None]
  - BLOOD LACTATE DEHYDROGENASE INCREASED [None]
  - PNEUMONIA [None]
  - HYPONATRAEMIA [None]
  - ILL-DEFINED DISORDER [None]
  - PANCYTOPENIA [None]
  - ANAEMIA [None]
  - CEREBRAL DISORDER [None]
  - ASPARTATE AMINOTRANSFERASE INCREASED [None]
